FAERS Safety Report 7552377-6 (Version None)
Quarter: 2011Q2

REPORT INFORMATION
  Report Type: 
  Country: None (occurrence: None)
  Receive Date: 20110616
  Receipt Date: 20050223
  Transmission Date: 20111010
  Serious: Yes (Death)
  Sender: FDA-Public Use
  Company Number: PHHO2005AT03169

PATIENT
  Sex: Male

DRUGS (4)
  1. DIOVAN [Concomitant]
  2. AMLODIPINE [Concomitant]
  3. DIOVAN HCT [Suspect]
     Dates: start: 20040902
  4. NORMOXIN [Concomitant]

REACTIONS (1)
  - DEATH [None]
